FAERS Safety Report 26126330 (Version 1)
Quarter: 2025Q4

REPORT INFORMATION
  Report Type: Spontaneous
  Country: US (occurrence: US)
  Receive Date: 20251205
  Receipt Date: 20251205
  Transmission Date: 20260117
  Serious: Yes (Hospitalization)
  Sender: BAXTER
  Company Number: US-MLMSERVICE-20251121-PI721908-00077-1

PATIENT
  Age: 59 Year
  Sex: Female

DRUGS (5)
  1. DOXORUBICIN [Suspect]
     Active Substance: DOXORUBICIN
     Indication: Triple negative breast cancer
     Route: 065
  2. CYCLOPHOSPHAMIDE [Suspect]
     Active Substance: CYCLOPHOSPHAMIDE
     Indication: Triple negative breast cancer
     Route: 065
  3. XELODA [Suspect]
     Active Substance: CAPECITABINE
     Indication: Triple negative breast cancer
     Route: 065
  4. ANASTROZOLE [Suspect]
     Active Substance: ANASTROZOLE
     Indication: Triple negative breast cancer
     Route: 065
  5. PACLITAXEL [Suspect]
     Active Substance: PACLITAXEL
     Indication: Triple negative breast cancer
     Dosage: UNK
     Route: 065

REACTIONS (9)
  - Ovarian stromal hyperplasia [Unknown]
  - Hyperandrogenism [Unknown]
  - Premature menopause [Unknown]
  - Blood testosterone increased [Recovered/Resolved]
  - Hair growth abnormal [Unknown]
  - Weight increased [Unknown]
  - Dysphonia [Unknown]
  - Alopecia [Unknown]
  - Acanthosis [Unknown]
